FAERS Safety Report 13053592 (Version 1)
Quarter: 2016Q4

REPORT INFORMATION
  Report Type: Spontaneous
  Country: US (occurrence: US)
  Receive Date: 20161221
  Receipt Date: 20161221
  Transmission Date: 20170207
  Serious: Yes (Death, Other)
  Sender: FDA-Public Use
  Company Number: None

PATIENT
  Age: 65 Year
  Sex: Female

DRUGS (1)
  1. REVLIMID [Suspect]
     Active Substance: LENALIDOMIDE
     Indication: PLASMA CELL MYELOMA
     Route: 048
     Dates: start: 20161123

REACTIONS (9)
  - Epistaxis [None]
  - Pneumonia [None]
  - Cardiac arrest [None]
  - Pancytopenia [None]
  - Fatigue [None]
  - Staphylococcal bacteraemia [None]
  - Ventricular fibrillation [None]
  - Metabolic acidosis [None]
  - Cardiac failure acute [None]

NARRATIVE: CASE EVENT DATE: 20161204
